FAERS Safety Report 12577463 (Version 2)
Quarter: 2017Q3

REPORT INFORMATION
  Report Type: Spontaneous
  Country: US (occurrence: US)
  Receive Date: 20160720
  Receipt Date: 20170727
  Transmission Date: 20171127
  Serious: No
  Sender: FDA-Public Use
  Company Number: US-ACTELION-A-US2016-139130

PATIENT
  Age: 46 Year
  Sex: Female

DRUGS (1)
  1. VALCHLOR [Suspect]
     Active Substance: MECHLORETHAMINE
     Indication: MYCOSIS FUNGOIDES
     Dosage: UNK
     Route: 061
     Dates: start: 20160405

REACTIONS (5)
  - Application site erythema [Not Recovered/Not Resolved]
  - Application site pruritus [Not Recovered/Not Resolved]
  - Therapy non-responder [Unknown]
  - Application site swelling [Not Recovered/Not Resolved]
  - Application site inflammation [Not Recovered/Not Resolved]
